FAERS Safety Report 6611987-0 (Version None)
Quarter: 2010Q1

REPORT INFORMATION
  Report Type: 
  Country: None (occurrence: None)
  Receive Date: 20100302
  Receipt Date: 20100302
  Transmission Date: 20100710
  Serious: Yes (Other)
  Sender: FDA-Public Use
  Company Number: None

PATIENT
  Age: 62 Year
  Sex: Female
  Weight: 77.1115 kg

DRUGS (2)
  1. PEG 3350 AND ELECTROLYTES [Suspect]
     Indication: BOWEL PREPARATION
     Dosage: 4 LITERS ONE DAY PO
     Route: 048
     Dates: start: 20100221, end: 20100222
  2. PEG 3350 AND ELECTROLYTES [Suspect]
     Indication: COLONOSCOPY
     Dosage: 4 LITERS ONE DAY PO
     Route: 048
     Dates: start: 20100221, end: 20100222

REACTIONS (3)
  - DRUG HYPERSENSITIVITY [None]
  - DYSPHONIA [None]
  - VOCAL CORD DISORDER [None]
